FAERS Safety Report 8010590-8 (Version None)
Quarter: 2011Q4

REPORT INFORMATION
  Report Type: 
  Country: None (occurrence: None)
  Receive Date: 20111228
  Receipt Date: 20111221
  Transmission Date: 20120403
  Serious: Yes (Hospitalization)
  Sender: FDA-Public Use
  Company Number: PHHO2011DE16021

PATIENT
  Sex: Female
  Weight: 58 kg

DRUGS (7)
  1. EVEROLIMUS [Suspect]
     Indication: LIVER TRANSPLANT
     Dosage: 1 MG, BID
     Route: 048
     Dates: start: 20090117
  2. URSO FALK [Concomitant]
     Indication: PROPHYLAXIS
     Dosage: 500 MG, BID
     Route: 048
     Dates: start: 20081105
  3. LEVOTHYROXINE SODIUM [Concomitant]
     Indication: PROPHYLAXIS
     Dosage: 75 UG, QD
     Dates: start: 20070424
  4. TAZOBACTAM [Concomitant]
     Indication: SEPSIS
     Dosage: 4.5 G, QID
     Route: 042
     Dates: start: 20110822
  5. MEROPENEM [Concomitant]
     Indication: SEPSIS
     Dosage: 1 G, TID
     Dates: start: 20110824
  6. VANCOMYCIN HYCHLORIDE [Concomitant]
     Indication: SEPSIS
     Dosage: 1 G, BID
     Route: 042
     Dates: start: 20110824
  7. PANTOPRAZOLE SODIUM [Concomitant]
     Indication: GASTRIC ULCER
     Dosage: 40 MG, BID
     Route: 048
     Dates: start: 20110823

REACTIONS (1)
  - PORTAL VEIN THROMBOSIS [None]
